FAERS Safety Report 12693362 (Version 1)
Quarter: 2016Q3

REPORT INFORMATION
  Report Type: Spontaneous
  Country: FR (occurrence: FR)
  Receive Date: 20160829
  Receipt Date: 20160829
  Transmission Date: 20161109
  Serious: Yes (Hospitalization, Other)
  Sender: FDA-Public Use
  Company Number: FR-009507513-1608FRA012743

PATIENT
  Age: 64 Year
  Sex: Male

DRUGS (1)
  1. HYZAAR [Suspect]
     Active Substance: HYDROCHLOROTHIAZIDE\LOSARTAN POTASSIUM
     Indication: HYPERTENSION
     Dosage: 1 TABLET, ONCE DAILY
     Route: 048
     Dates: start: 2006

REACTIONS (5)
  - Arrhythmia [Unknown]
  - Bradycardia [Unknown]
  - Prostate cancer [Unknown]
  - Fatigue [Unknown]
  - Overdose [Unknown]

NARRATIVE: CASE EVENT DATE: 201510
